FAERS Safety Report 7699972-1 (Version None)
Quarter: 2011Q3

REPORT INFORMATION
  Report Type: 
  Country: None (occurrence: None)
  Receive Date: 20110815
  Receipt Date: 20110801
  Transmission Date: 20111222
  Serious: Yes (Hospitalization, Other)
  Sender: FDA-Public Use
  Company Number: 2009S1004175

PATIENT
  Age: 61 Year
  Sex: Male
  Weight: 109.3169 kg

DRUGS (9)
  1. HYDROCHLOROTHIAZIDE [Concomitant]
  2. ASPIRIN [Concomitant]
  3. LIPITOR [Concomitant]
  4. NIACIN [Concomitant]
  5. PANTOPRAZOLE [Concomitant]
  6. AVAPRO [Concomitant]
  7. CLARITIN [Concomitant]
  8. PHOSPHOSODA FLAVOR NOT SPECIFIED [Suspect]
     Indication: COLONOSCOPY
     Dosage: 90 ML;TOTAL;PO
     Route: 048
     Dates: start: 20080101, end: 20080101
  9. BENAZEPRIL HYDROCHLORIDE [Concomitant]

REACTIONS (10)
  - ACUTE PHOSPHATE NEPHROPATHY [None]
  - RENAL TUBULAR NECROSIS [None]
  - MUSCLE SPASMS [None]
  - NEUROPATHY PERIPHERAL [None]
  - RENAL FAILURE ACUTE [None]
  - HYPOAESTHESIA [None]
  - ARTHRALGIA [None]
  - DIARRHOEA [None]
  - FATIGUE [None]
  - RENAL FAILURE CHRONIC [None]
